FAERS Safety Report 15145820 (Version 1)
Quarter: 2018Q3

REPORT INFORMATION
  Report Type: Spontaneous
  Country: FR (occurrence: FR)
  Receive Date: 20180714
  Receipt Date: 20180714
  Transmission Date: 20181010
  Serious: Yes (Other)
  Sender: FDA-Public Use
  Company Number: FR-TEVA-2018-FR-925998

PATIENT
  Age: 84 Year
  Sex: Male

DRUGS (16)
  1. AMLODIPINE [Suspect]
     Active Substance: AMLODIPINE BESYLATE
     Indication: DRUG ADMINISTRATION ERROR
     Route: 048
     Dates: start: 20180525, end: 20180525
  2. LASILIX [Concomitant]
     Active Substance: FUROSEMIDE
     Route: 065
  3. RAMIPRIL. [Concomitant]
     Active Substance: RAMIPRIL
     Route: 065
  4. LAROXYL 25 MG, COMPRIM? PELLICUL? [Suspect]
     Active Substance: AMITRIPTYLINE HYDROCHLORIDE
     Indication: DRUG ADMINISTRATION ERROR
     Route: 048
     Dates: start: 20180525, end: 20180525
  5. PAROXETINE. [Concomitant]
     Active Substance: PAROXETINE
     Route: 065
  6. DAFALGAN [Concomitant]
     Active Substance: ACETAMINOPHEN
     Route: 065
  7. LOVENOX 2 000 UI ANTI?XA/0,2 ML, SOLUTION INJECTABLE EN CARTOUCHE [Concomitant]
  8. METFORMIN [Suspect]
     Active Substance: METFORMIN HYDROCHLORIDE
     Indication: DRUG ADMINISTRATION ERROR
     Route: 048
     Dates: start: 20180525, end: 20180525
  9. LARGACTIL 25 MG, COMPRIM? PELLICUL? S?CABLE [Suspect]
     Active Substance: CHLORPROMAZINE HYDROCHLORIDE
     Indication: DRUG ADMINISTRATION ERROR
     Route: 048
     Dates: start: 20180525, end: 20180525
  10. CORDARONE [Concomitant]
     Active Substance: AMIODARONE HYDROCHLORIDE
     Route: 065
  11. PREGABALINE [Concomitant]
     Active Substance: PREGABALIN
     Route: 065
  12. UVEDOSE 100 000 UI, SOLUTION BUVABLE EN AMPOULE [Concomitant]
     Active Substance: CHOLECALCIFEROL
     Route: 065
  13. KARDEGIC [Concomitant]
     Active Substance: ASPIRIN DL-LYSINE
  14. RIVASTIGMINE BASE [Concomitant]
     Active Substance: RIVASTIGMINE
     Route: 065
  15. PERINDOPRIL [Suspect]
     Active Substance: PERINDOPRIL
     Indication: DRUG ADMINISTRATION ERROR
     Dates: start: 20180525, end: 20180525
  16. MACROGOL (STEARATE DE) [Concomitant]
     Route: 065

REACTIONS (3)
  - Somnolence [Recovered/Resolved]
  - Fall [Recovered/Resolved]
  - Drug administration error [Recovered/Resolved]

NARRATIVE: CASE EVENT DATE: 20180525
